FAERS Safety Report 6327731-0 (Version None)
Quarter: 2009Q3

REPORT INFORMATION
  Report Type: 
  Country: None (occurrence: None)
  Receive Date: 20090825
  Receipt Date: 20090817
  Transmission Date: 20100115
  Serious: Yes (Other)
  Sender: FDA-Public Use
  Company Number: FR-ABBOTT-09P-056-0580928-00

PATIENT
  Sex: Male

DRUGS (2)
  1. HUMIRA [Suspect]
     Indication: ANKYLOSING SPONDYLITIS
     Route: 058
     Dates: start: 20081101, end: 20090411
  2. HUMIRA [Suspect]
     Route: 058
     Dates: start: 20071101, end: 20081101

REACTIONS (7)
  - ALPHA 2 GLOBULIN INCREASED [None]
  - INFLAMMATION [None]
  - NON-HODGKIN'S LYMPHOMA [None]
  - PAIN [None]
  - PYREXIA [None]
  - SUBCUTANEOUS NODULE [None]
  - VIRAL INFECTION [None]
